FAERS Safety Report 22655720 (Version 1)
Quarter: 2023Q2

REPORT INFORMATION
  Report Type: Spontaneous
  Country: CN (occurrence: None)
  Receive Date: 20230629
  Receipt Date: 20230629
  Transmission Date: 20230722
  Serious: Yes (Hospitalization)
  Sender: FDA-Public Use
  Company Number: 2023A147074

PATIENT
  Sex: Male

DRUGS (1)
  1. SYMBICORT [Suspect]
     Active Substance: BUDESONIDE\FORMOTEROL FUMARATE DIHYDRATE
     Dosage: 160?G/4.5?G/INHALATION, 60 INHALATIONS/VIAL, 1 VIAL/BOX UNKNOWN
     Route: 055

REACTIONS (3)
  - Cardiac discomfort [Unknown]
  - Device malfunction [Unknown]
  - Extra dose administered [Unknown]
